FAERS Safety Report 7145361-8 (Version None)
Quarter: 2010Q4

REPORT INFORMATION
  Report Type: 
  Country: None (occurrence: None)
  Receive Date: 20101208
  Receipt Date: 20101129
  Transmission Date: 20110411
  Serious: Yes (Other)
  Sender: FDA-Public Use
  Company Number: US-JNJFOC-20101200612

PATIENT
  Sex: Male
  Weight: 90.72 kg

DRUGS (2)
  1. REMICADE [Suspect]
     Indication: COLITIS ULCERATIVE
     Route: 042
  2. LIALDA [Concomitant]
     Indication: COLITIS ULCERATIVE
     Route: 048

REACTIONS (6)
  - DYSKINESIA [None]
  - DYSPNOEA [None]
  - MUSCLE TIGHTNESS [None]
  - MYALGIA [None]
  - PAIN IN EXTREMITY [None]
  - URTICARIA [None]
